FAERS Safety Report 7942052-8 (Version None)
Quarter: 2011Q4

REPORT INFORMATION
  Report Type: 
  Country: None (occurrence: None)
  Receive Date: 20111128
  Receipt Date: 20111128
  Transmission Date: 20120403
  Serious: Yes (Other)
  Sender: FDA-Public Use
  Company Number: None

PATIENT
  Age: 49 Year
  Sex: Male
  Weight: 68.038 kg

DRUGS (1)
  1. BOTOX [Suspect]
     Indication: MUSCLE SPASMS

REACTIONS (1)
  - NO ADVERSE EVENT [None]
